FAERS Safety Report 7875365-9 (Version None)
Quarter: 2011Q4

REPORT INFORMATION
  Report Type: 
  Country: None (occurrence: None)
  Receive Date: 20111031
  Receipt Date: 20111018
  Transmission Date: 20120403
  Serious: Yes (Hospitalization)
  Sender: FDA-Public Use
  Company Number: US-GLAXOSMITHKLINE-B0702000A

PATIENT
  Age: 49 Year
  Sex: Female
  Weight: 129.5 kg

DRUGS (9)
  1. LASIX [Concomitant]
  2. SPIRONOLACTONE [Concomitant]
  3. ASPIRIN [Concomitant]
  4. EFFEXOR [Concomitant]
  5. NORVASC [Concomitant]
  6. CARDURA [Concomitant]
  7. METOPROLOL [Concomitant]
  8. AVANDIA [Suspect]
     Indication: DIABETES MELLITUS
     Dosage: 4MG TWICE PER DAY
     Route: 048
  9. LISINOPRIL [Concomitant]

REACTIONS (3)
  - RENAL FAILURE [None]
  - CORONARY ARTERY DISEASE [None]
  - CARDIAC FAILURE CONGESTIVE [None]
